FAERS Safety Report 17449030 (Version 2)
Quarter: 2020Q2

REPORT INFORMATION
  Report Type: Report from Study
  Country: US (occurrence: US)
  Receive Date: 20200224
  Receipt Date: 20200629
  Transmission Date: 20200713
  Serious: Yes (Death, Life-Threatening)
  Sender: FDA-Public Use
  Company Number: US-ROCHE-2539535

PATIENT
  Age: 57 Year
  Sex: Female
  Weight: 54.1 kg

DRUGS (16)
  1. ATEZOLIZUMAB. [Suspect]
     Active Substance: ATEZOLIZUMAB
     Indication: TRIPLE NEGATIVE BREAST CANCER
     Dosage: OVER 30 - 60 MINUTES ON DAY 1. ON 27/DEC/2019, RECEIVED LAST DOSE OF ATEZOLIZUMAB
     Route: 042
     Dates: start: 20191205
  2. SELENIUM [Concomitant]
     Active Substance: SELENIUM
  3. MORPHINE [Concomitant]
     Active Substance: MORPHINE
  4. TRAMADOL. [Concomitant]
     Active Substance: TRAMADOL
  5. SERTRALINE [Concomitant]
     Active Substance: SERTRALINE HYDROCHLORIDE
  6. CALCIUM CARBONATE. [Concomitant]
     Active Substance: CALCIUM CARBONATE
  7. IBUPROFEN. [Concomitant]
     Active Substance: IBUPROFEN
  8. OLAPARIB. [Suspect]
     Active Substance: OLAPARIB
     Indication: TRIPLE NEGATIVE BREAST CANCER
     Route: 042
     Dates: start: 20191205
  9. BIOTIN [Concomitant]
     Active Substance: BIOTIN
  10. ACETAMINOPHEN. [Concomitant]
     Active Substance: ACETAMINOPHEN
  11. MAGNESIUM [Concomitant]
     Active Substance: MAGNESIUM
  12. DOCUSATE SODIUM. [Concomitant]
     Active Substance: DOCUSATE SODIUM
  13. TURMERIC [CURCUMA LONGA] [Concomitant]
     Active Substance: HERBALS\TURMERIC
  14. LORATADINE. [Concomitant]
     Active Substance: LORATADINE
  15. NAPROXEN. [Concomitant]
     Active Substance: NAPROXEN
  16. AMFETAMINE;DEXAMFETAMINE [Concomitant]

REACTIONS (2)
  - Respiratory failure [Unknown]
  - Haemorrhage intracranial [Fatal]

NARRATIVE: CASE EVENT DATE: 20191230
